FAERS Safety Report 24937268 (Version 1)
Quarter: 2025Q1

REPORT INFORMATION
  Report Type: Report from Study
  Country: CA (occurrence: CA)
  Receive Date: 20250206
  Receipt Date: 20250206
  Transmission Date: 20250409
  Serious: Yes (Other)
  Sender: CELLTRION
  Company Number: CA-CELLTRION INC.-2024CA028212

PATIENT

DRUGS (24)
  1. USTEKINUMAB [Suspect]
     Active Substance: USTEKINUMAB
     Indication: Crohn^s disease
     Dosage: 90 MG, Q4WEEKS
     Route: 058
     Dates: start: 20241204
  2. POTASSIUM [Concomitant]
     Active Substance: POTASSIUM
  3. FUROSEMIDE [Concomitant]
     Active Substance: FUROSEMIDE
  4. MINOCYCLINE [Concomitant]
     Active Substance: MINOCYCLINE HYDROCHLORIDE
  5. HYDRALAZINE [Concomitant]
     Active Substance: HYDRALAZINE HYDROCHLORIDE
  6. PENTASA [Concomitant]
     Active Substance: MESALAMINE
  7. SPIRONOLACTONE [Concomitant]
     Active Substance: SPIRONOLACTONE
  8. VITAMIN B12 [Concomitant]
     Active Substance: CYANOCOBALAMIN
  9. ROSUVASTATIN [Concomitant]
     Active Substance: ROSUVASTATIN
  10. CHOLECALCIFEROL [Concomitant]
     Active Substance: CHOLECALCIFEROL
  11. COLCHICINE [Concomitant]
     Active Substance: COLCHICINE
  12. PANTOPRAZOLE [Concomitant]
     Active Substance: PANTOPRAZOLE
  13. GLYCOPYRROLATE [Concomitant]
     Active Substance: GLYCOPYRROLATE
  14. ALBUTEROL [Concomitant]
     Active Substance: ALBUTEROL
  15. FLUTICASONE [Concomitant]
     Active Substance: FLUTICASONE
  16. PERINDOPRIL [Concomitant]
     Active Substance: PERINDOPRIL
  17. LORAZEPAM [Concomitant]
     Active Substance: LORAZEPAM
  18. DESONIDE [Concomitant]
     Active Substance: DESONIDE
  19. VITAMIN B1 [Concomitant]
     Active Substance: THIAMINE HYDROCHLORIDE
  20. NYSTATIN [Concomitant]
     Active Substance: NYSTATIN
  21. CLOBETASOL [Concomitant]
     Active Substance: CLOBETASOL
  22. DOCUSATE SODIUM [Concomitant]
     Active Substance: DOCUSATE SODIUM
  23. ASPIRIN [Concomitant]
     Active Substance: ASPIRIN
  24. LABETALOL [Concomitant]
     Active Substance: LABETALOL

REACTIONS (7)
  - Haematochezia [Unknown]
  - Renal pain [Unknown]
  - Flank pain [Unknown]
  - Constipation [Unknown]
  - Hypotension [Unknown]
  - Abdominal pain upper [Unknown]
  - Intentional product use issue [Unknown]
